FAERS Safety Report 8488839-7 (Version None)
Quarter: 2012Q3

REPORT INFORMATION
  Report Type: 
  Country: None (occurrence: None)
  Receive Date: 20120705
  Receipt Date: 20120627
  Transmission Date: 20120928
  Serious: Yes (Other)
  Sender: FDA-Public Use
  Company Number: BR-ROCHE-762558

PATIENT
  Sex: Female
  Weight: 62 kg

DRUGS (15)
  1. ACTEMRA [Suspect]
     Indication: RHEUMATOID ARTHRITIS
     Dosage: INFUSION,UNSPECIFIED DOSE
     Route: 042
     Dates: start: 20110111, end: 20110501
  2. MABTHERA [Suspect]
     Indication: PRODUCT USED FOR UNKNOWN INDICATION
     Route: 065
     Dates: start: 20120529, end: 20120615
  3. AMLODIPINE BESYLATE [Concomitant]
  4. LOSARTAN POTASSIUM [Concomitant]
  5. METFORMIN HYDROCHLORIDE [Concomitant]
  6. FOLIC ACID [Concomitant]
  7. FELDENE [Concomitant]
  8. DEFLAZACORT [Concomitant]
  9. OMEPRAZOLE [Concomitant]
  10. OS-CAL +D [Concomitant]
  11. HYDROCHLOROTHIAZIDE [Concomitant]
  12. DIPROSPAN [Concomitant]
  13. ACTEMRA [Suspect]
     Route: 042
  14. METHOTREXATE [Concomitant]
  15. CRESTOR [Concomitant]

REACTIONS (8)
  - SOMNOLENCE [None]
  - ABASIA [None]
  - DRUG INEFFECTIVE [None]
  - PAIN [None]
  - OEDEMA PERIPHERAL [None]
  - URINARY TRACT INFECTION [None]
  - ARTHRITIS [None]
  - ASTHENIA [None]
